FAERS Safety Report 23631041 (Version 2)
Quarter: 2024Q4

REPORT INFORMATION
  Report Type: Other
  Country: FR (occurrence: FR)
  Receive Date: 20240314
  Receipt Date: 20241029
  Transmission Date: 20250114
  Serious: Yes (Hospitalization)
  Sender: LANTHEUS MEDICAL IMAGING
  Company Number: FR-LANTHEUS-LMI-2024-00247

PATIENT
  Age: 50 Year
  Sex: Male

DRUGS (4)
  1. PERFLUTREN [Suspect]
     Active Substance: PERFLUTREN
     Indication: Glioblastoma
     Dosage: 1.1 MILLILITRE, QD (150  L/ML GAS AND SOLVENT FOR DISPERSION FOR INJECTION/INFUSION)
     Route: 042
     Dates: start: 20221006
  2. PERFLUTREN [Suspect]
     Active Substance: PERFLUTREN
     Indication: Ultrasound scan
  3. TEMOZOLOMIDE [Suspect]
     Active Substance: TEMOZOLOMIDE
     Indication: Glioblastoma
     Dosage: 5 MG CAPSULE; 75 MILLIGRAM PER SQUARE METRE; QD
     Route: 048
     Dates: start: 20221020
  4. TEMOZOLOMIDE [Suspect]
     Active Substance: TEMOZOLOMIDE
     Indication: Ultrasound scan

REACTIONS (3)
  - Aphasia [Recovered/Resolved with Sequelae]
  - Hemiparesis [Recovered/Resolved with Sequelae]
  - Partial seizures [Recovered/Resolved with Sequelae]

NARRATIVE: CASE EVENT DATE: 20230509
